FAERS Safety Report 23088960 (Version 1)
Quarter: 2023Q4

REPORT INFORMATION
  Report Type: Spontaneous
  Country: US (occurrence: US)
  Receive Date: 20231020
  Receipt Date: 20231020
  Transmission Date: 20240109
  Serious: Yes (Life-Threatening, Hospitalization, Other)
  Sender: FDA-Public Use
  Company Number: US-MLMSERVICE-20231003-4578293-1

PATIENT
  Age: 5 Decade
  Sex: Male

DRUGS (3)
  1. TESTOSTERONE [Suspect]
     Active Substance: TESTOSTERONE
     Indication: Performance enhancing product use
     Dosage: 3 DOSAGE FORM, WEEKLY
     Route: 030
  2. OXANDROLONE [Suspect]
     Active Substance: OXANDROLONE
     Indication: Performance enhancing product use
     Dosage: 50 MILLIGRAM, QD
     Route: 048
  3. BOLDENONE UNDECYLENATE [Suspect]
     Active Substance: BOLDENONE UNDECYLENATE
     Indication: Performance enhancing product use
     Dosage: INTRAMUSCULAR INJECTION THREE TIMES WEEKLY
     Route: 030

REACTIONS (7)
  - Drug abuse [Unknown]
  - Rhabdomyolysis [Unknown]
  - Peripheral artery occlusion [Unknown]
  - Aortic occlusion [Unknown]
  - Peripheral artery thrombosis [Unknown]
  - Aortic thrombosis [Unknown]
  - Pulmonary alveolar haemorrhage [Unknown]
